FAERS Safety Report 6065307-3 (Version None)
Quarter: 2009Q1

REPORT INFORMATION
  Report Type: 
  Country: None (occurrence: None)
  Receive Date: 20090204
  Receipt Date: 20090127
  Transmission Date: 20090719
  Serious: Yes (Death)
  Sender: FDA-Public Use
  Company Number: DE-ABBOTT-08P-062-0492350-00

PATIENT
  Sex: Female

DRUGS (7)
  1. HUMIRA [Suspect]
     Indication: RHEUMATOID ARTHRITIS
     Route: 058
     Dates: start: 20070701, end: 20080101
  2. HUMIRA [Suspect]
     Route: 058
     Dates: start: 20051201, end: 20070401
  3. METHOTREXATE [Suspect]
     Indication: RHEUMATOID ARTHRITIS
     Dates: start: 20070601, end: 20080101
  4. METHOTREXATE [Suspect]
     Dates: start: 19911001
  5. METHOTREXATE [Suspect]
  6. METHOTREXATE [Suspect]
  7. KINERET [Concomitant]
     Indication: DRUG USE FOR UNKNOWN INDICATION
     Dates: start: 20040501, end: 20051201

REACTIONS (2)
  - COMPLETED SUICIDE [None]
  - DEPRESSION [None]
